FAERS Safety Report 8115513-9 (Version None)
Quarter: 2012Q1

REPORT INFORMATION
  Report Type: 
  Country: None (occurrence: None)
  Receive Date: 20120206
  Receipt Date: 20120131
  Transmission Date: 20120608
  Serious: Yes (Hospitalization)
  Sender: FDA-Public Use
  Company Number: US-AMGEN-USASP2012006646

PATIENT
  Age: 70 Year
  Sex: Female

DRUGS (3)
  1. PLAVIX [Suspect]
     Dosage: UNK
  2. CELEBREX [Concomitant]
     Dosage: UNK
  3. ENBREL [Suspect]
     Indication: RHEUMATOID ARTHRITIS
     Dosage: 50 MG, QWK
     Dates: start: 19980201

REACTIONS (4)
  - SHOULDER ARTHROPLASTY [None]
  - RENAL DISORDER [None]
  - INJECTION SITE HAEMATOMA [None]
  - INJECTION SITE HAEMORRHAGE [None]
